FAERS Safety Report 24279044 (Version 1)
Quarter: 2024Q3

REPORT INFORMATION
  Report Type: Spontaneous
  Country: FR (occurrence: FR)
  Receive Date: 20240903
  Receipt Date: 20240903
  Transmission Date: 20241016
  Serious: Yes (Hospitalization)
  Sender: TEVA
  Company Number: None

PATIENT
  Age: 51 Year
  Sex: Female

DRUGS (2)
  1. CIPROFLOXACIN [Suspect]
     Active Substance: CIPROFLOXACIN
     Indication: Infection
     Dosage: CIPROFLOXACINE
     Route: 048
  2. BACTRIM [Suspect]
     Active Substance: SULFAMETHOXAZOLE\TRIMETHOPRIM
     Indication: Infection
     Route: 048

REACTIONS (1)
  - Toxic epidermal necrolysis [Recovered/Resolved]
